FAERS Safety Report 13162484 (Version 4)
Quarter: 2017Q1

REPORT INFORMATION
  Report Type: Spontaneous
  Country: US (occurrence: US)
  Receive Date: 20170130
  Receipt Date: 20170217
  Transmission Date: 20170428
  Serious: Yes (Other)
  Sender: FDA-Public Use
  Company Number: US-BAYER-2017-017695

PATIENT

DRUGS (2)
  1. HELIXATE FS [Suspect]
     Active Substance: ANTIHEMOPHILIC FACTOR, HUMAN RECOMBINANT
     Indication: HAEMORRHAGE PROPHYLAXIS
     Dosage: 776 IU, UNK
     Route: 042
     Dates: start: 20170124
  2. HELIXATE FS [Suspect]
     Active Substance: ANTIHEMOPHILIC FACTOR, HUMAN RECOMBINANT
     Indication: HAEMORRHAGE PROPHYLAXIS
     Dosage: UNK
     Route: 042
     Dates: start: 20170124

REACTIONS (2)
  - Therapeutic response decreased [Recovered/Resolved]
  - Product lot number issue [None]

NARRATIVE: CASE EVENT DATE: 20170124
